FAERS Safety Report 13317110 (Version 1)
Quarter: 2017Q1

REPORT INFORMATION
  Report Type: Spontaneous
  Country: US (occurrence: US)
  Receive Date: 20170310
  Receipt Date: 20170310
  Transmission Date: 20170428
  Serious: No
  Sender: FDA-Public Use
  Company Number: US-AMGEN-USASP2017032469

PATIENT
  Age: 68 Year
  Sex: Female

DRUGS (4)
  1. ELOCON [Concomitant]
     Active Substance: MOMETASONE FUROATE
     Dosage: UNK
  2. AFRIN [Concomitant]
     Active Substance: OXYMETAZOLINE
     Dosage: UNK
  3. TDAP IMMUN [Concomitant]
     Dosage: UNK
     Dates: start: 20170221
  4. ENBREL [Suspect]
     Active Substance: ETANERCEPT
     Indication: PRODUCT USED FOR UNKNOWN INDICATION
     Dosage: 50 MG, QWK
     Route: 058
     Dates: start: 20170206

REACTIONS (1)
  - Rash erythematous [Recovered/Resolved]

NARRATIVE: CASE EVENT DATE: 20170221
